FAERS Safety Report 8060173-9 (Version None)
Quarter: 2012Q1

REPORT INFORMATION
  Report Type: 
  Country: None (occurrence: None)
  Receive Date: 20120120
  Receipt Date: 20120111
  Transmission Date: 20120608
  Serious: Yes (Other)
  Sender: FDA-Public Use
  Company Number: CA-ROCHE-GNE305461

PATIENT
  Sex: Female

DRUGS (6)
  1. VENTOLIN [Concomitant]
  2. ADVAIR DISKUS 100/50 [Concomitant]
  3. XOLAIR [Suspect]
     Indication: ASTHMA
     Route: 058
     Dates: start: 20050722
  4. XOLAIR [Suspect]
     Route: 058
     Dates: start: 20110406
  5. FLOVENT [Concomitant]
  6. METFORMIN HCL [Concomitant]

REACTIONS (11)
  - CHEST PAIN [None]
  - FURUNCLE [None]
  - CHEST DISCOMFORT [None]
  - UNDERDOSE [None]
  - WEIGHT DECREASED [None]
  - DIABETES MELLITUS [None]
  - FATIGUE [None]
  - COUGH [None]
  - FEELING ABNORMAL [None]
  - ECZEMA [None]
  - ASTHMA [None]
